FAERS Safety Report 23410868 (Version 1)
Quarter: 2024Q1

REPORT INFORMATION
  Report Type: Spontaneous
  Country: FR (occurrence: FR)
  Receive Date: 20240117
  Receipt Date: 20240117
  Transmission Date: 20240410
  Serious: Yes (Hospitalization)
  Sender: FDA-Public Use
  Company Number: None

PATIENT
  Age: 61 Year
  Sex: Female

DRUGS (8)
  1. ADALIMUMAB [Suspect]
     Active Substance: ADALIMUMAB\ISOPROPYL ALCOHOL
     Indication: Rheumatoid arthritis
     Dosage: UNUSUAL DOSAGES, UNKNOWN
     Route: 058
     Dates: start: 201803, end: 2019
  2. ARAVA [Suspect]
     Active Substance: LEFLUNOMIDE
     Indication: Rheumatoid arthritis
     Route: 048
     Dates: start: 201803, end: 20210616
  3. METHOTREXATE [Suspect]
     Active Substance: METHOTREXATE
     Indication: Rheumatoid arthritis
     Dosage: UNUSUAL DOSAGES, UNKNOWN
     Route: 030
     Dates: start: 201612, end: 2017
  4. COMIRNATY (TOZINAMERAN) [Suspect]
     Active Substance: TOZINAMERAN
     Indication: COVID-19 immunisation
     Dosage: D1+D2+R1+R2, COMIRNATY 30 MICROGRAMS/DOSE, DISPERSION TO BE DILUTED FOR SOLUTION FOR INJECTION. MRNA
     Route: 030
     Dates: start: 20210416, end: 20220413
  5. COMIRNATY (TOZINAMERAN) [Suspect]
     Active Substance: TOZINAMERAN
     Dosage: UNKNOWN
     Route: 065
  6. COMIRNATY (TOZINAMERAN) [Suspect]
     Active Substance: TOZINAMERAN
     Dosage: UNKNOWN
     Route: 065
  7. COMIRNATY (TOZINAMERAN) [Suspect]
     Active Substance: TOZINAMERAN
     Dosage: UNKNOWN
     Route: 065
  8. ORENCIA [Suspect]
     Active Substance: ABATACEPT
     Indication: Rheumatoid arthritis
     Dosage: 14 PERFUSIONS OF ABATACEPT, UNKNOWN
     Route: 042
     Dates: start: 202003, end: 2021

REACTIONS (4)
  - Condition aggravated [Recovering/Resolving]
  - Pulmonary mass [Recovering/Resolving]
  - Pulmonary embolism [Recovering/Resolving]
  - Breast cellulitis [Recovering/Resolving]

NARRATIVE: CASE EVENT DATE: 20210501
